APPROVED DRUG PRODUCT: FLUOCINOLONE ACETONIDE
Active Ingredient: FLUOCINOLONE ACETONIDE
Strength: 0.01%
Dosage Form/Route: SOLUTION;TOPICAL
Application: A088048 | Product #001
Applicant: ALLIED PHARMA INC
Approved: Dec 16, 1982 | RLD: No | RS: No | Type: DISCN